FAERS Safety Report 9075263 (Version 1)
Quarter: 2013Q1

REPORT INFORMATION
  Report Type: Spontaneous
  Country: TW (occurrence: TW)
  Receive Date: 20130129
  Receipt Date: 20130129
  Transmission Date: 20140127
  Serious: Yes (Hospitalization, Other)
  Sender: FDA-Public Use
  Company Number: TW-BRISTOL-MYERS SQUIBB COMPANY-17302464

PATIENT
  Age: 38 Year
  Sex: Female

DRUGS (1)
  1. BARACLUDE [Suspect]
     Dosage: INTERRUPTED ON SEP2010
     Dates: start: 20080707

REACTIONS (5)
  - Pregnancy [Recovered/Resolved]
  - Syncope [Unknown]
  - Viral load increased [Unknown]
  - Alanine aminotransferase increased [Unknown]
  - Premature delivery [Unknown]
